FAERS Safety Report 17885742 (Version 1)
Quarter: 2020Q2

REPORT INFORMATION
  Report Type: Spontaneous
  Country: GB (occurrence: GB)
  Receive Date: 20200611
  Receipt Date: 20200611
  Transmission Date: 20200714
  Serious: Yes (Hospitalization, Disabling, Other)
  Sender: FDA-Public Use
  Company Number: GB-GLAXOSMITHKLINE-GB2020097088

PATIENT
  Age: 54 Year
  Sex: Female
  Weight: 103.41 kg

DRUGS (1)
  1. ORLISTAT. [Suspect]
     Active Substance: ORLISTAT
     Indication: WEIGHT DECREASED
     Dosage: 360 MG, QD
     Route: 048
     Dates: start: 20200207, end: 20200427

REACTIONS (4)
  - Hepatic infection [Recovering/Resolving]
  - Fatigue [Recovering/Resolving]
  - Jaundice [Recovering/Resolving]
  - Abdominal pain upper [Recovering/Resolving]

NARRATIVE: CASE EVENT DATE: 20200421
